FAERS Safety Report 23196127 (Version 1)
Quarter: 2023Q4

REPORT INFORMATION
  Report Type: Spontaneous
  Country: US (occurrence: None)
  Receive Date: 20231116
  Receipt Date: 20231116
  Transmission Date: 20240110
  Serious: Yes (Other)
  Sender: FDA-Public Use
  Company Number: None

PATIENT
  Age: 38 Year
  Sex: Female
  Weight: 68.85 kg

DRUGS (5)
  1. MOUNJARO [Suspect]
     Active Substance: TIRZEPATIDE
     Indication: Diabetes mellitus
     Dosage: 1 INJECTION SUBCUTANEOUS ?
     Route: 058
     Dates: start: 20231114
  2. VIORELE [Concomitant]
     Active Substance: DESOGESTREL\ETHINYL ESTRADIOL
  3. ADDERALL [Concomitant]
     Active Substance: AMPHETAMINE ASPARTATE\AMPHETAMINE SULFATE\DEXTROAMPHETAMINE SACCHARATE\DEXTROAMPHETAMINE SULFATE
  4. HYDROXYZINE HYDROCHLORIDE [Concomitant]
     Active Substance: HYDROXYZINE HYDROCHLORIDE
  5. VITAMIN D [Concomitant]
     Active Substance: VITAMIN D NOS

REACTIONS (11)
  - Myalgia [None]
  - Pain [None]
  - Neck pain [None]
  - Facial pain [None]
  - Paraesthesia [None]
  - Joint stiffness [None]
  - Influenza [None]
  - COVID-19 [None]
  - Dysphagia [None]
  - Odynophagia [None]
  - Arthralgia [None]

NARRATIVE: CASE EVENT DATE: 20231115
